FAERS Safety Report 17692886 (Version 1)
Quarter: 2020Q2

REPORT INFORMATION
  Report Type: Spontaneous
  Country: US (occurrence: US)
  Receive Date: 20200422
  Receipt Date: 20200422
  Transmission Date: 20200714
  Serious: Yes (Hospitalization)
  Sender: FDA-Public Use
  Company Number: None

PATIENT
  Sex: Female

DRUGS (19)
  1. ZOLPIDEM [Concomitant]
     Active Substance: ZOLPIDEM TARTRATE
  2. ONDANSETRON [Concomitant]
     Active Substance: ONDANSETRON
  3. OTREXUP [Concomitant]
     Active Substance: METHOTREXATE
  4. VITAMINE D [Concomitant]
     Active Substance: CHOLECALCIFEROL
  5. SIMVASTATIN. [Concomitant]
     Active Substance: SIMVASTATIN
  6. FOLIC ACID. [Concomitant]
     Active Substance: FOLIC ACID
  7. LIOTHYRONINE [Concomitant]
     Active Substance: LIOTHYRONINE
  8. TYLENOL [Concomitant]
     Active Substance: ACETAMINOPHEN
  9. CELECOXIB. [Concomitant]
     Active Substance: CELECOXIB
  10. DULOXETINE. [Concomitant]
     Active Substance: DULOXETINE
  11. PREDNISONE. [Concomitant]
     Active Substance: PREDNISONE
  12. MORPHINE [Concomitant]
     Active Substance: MORPHINE
  13. FLUOXETINE [Concomitant]
     Active Substance: FLUOXETINE HYDROCHLORIDE
  14. GABAPENTIN. [Concomitant]
     Active Substance: GABAPENTIN
  15. ALBUTEROL. [Concomitant]
     Active Substance: ALBUTEROL
  16. ALFUZOSIN [Concomitant]
     Active Substance: ALFUZOSIN
  17. HUMIRA [Suspect]
     Active Substance: ADALIMUMAB
     Indication: SPONDYLOARTHROPATHY
     Dosage: ?          OTHER FREQUENCY:EVERY OTHER WEEK;?
     Route: 058
     Dates: start: 20200214
  18. ALENDRONATE [Concomitant]
     Active Substance: ALENDRONATE SODIUM
  19. OMEPRAZOLE. [Concomitant]
     Active Substance: OMEPRAZOLE

REACTIONS (1)
  - Condition aggravated [None]
